FAERS Safety Report 9706933 (Version 1)
Quarter: 2013Q4

REPORT INFORMATION
  Report Type: Spontaneous
  Country: US (occurrence: US)
  Receive Date: 20131125
  Receipt Date: 20131125
  Transmission Date: 20140711
  Serious: No
  Sender: FDA-Public Use
  Company Number: US-PFIZER INC-2013336016

PATIENT
  Age: 56 Year
  Sex: Female

DRUGS (3)
  1. ZOLOFT [Suspect]
     Indication: MENOPAUSAL SYMPTOMS
     Dosage: 100 MG, 1X/DAY
     Route: 048
  2. TRAZODONE [Concomitant]
     Indication: SLEEP DISORDER
     Dosage: 50 MG ONE TO TWO EVERY NIGHT
  3. TRAZODONE [Concomitant]
     Dosage: 50 MG, 1X/DAY (ONE EVERY NIGHT)

REACTIONS (3)
  - Off label use [Unknown]
  - Drug ineffective for unapproved indication [Unknown]
  - Product quality issue [Unknown]
